FAERS Safety Report 4409972-2 (Version None)
Quarter: 2004Q3

REPORT INFORMATION
  Report Type: 
  Country: None (occurrence: None)
  Receive Date: 20040726
  Receipt Date: 20040714
  Transmission Date: 20050211
  Serious: Yes (Other)
  Sender: FDA-Public Use
  Company Number: 2004220475CA

PATIENT
  Age: 28 Year
  Sex: Female
  Weight: 56.7 kg

DRUGS (2)
  1. DEPO-PROVERA [Suspect]
     Indication: CONTRACEPTION
     Dosage: 150MG/10 3 WEEK, MOST RECENT INJ., INTRAMUSCULAR
     Route: 030
     Dates: start: 19990901, end: 19990901
  2. DEPO-PROVERA [Suspect]
     Indication: CONTRACEPTION
     Dosage: 150MG/10 3 WEEK, MOST RECENT INJ., INTRAMUSCULAR
     Route: 030
     Dates: start: 20040608, end: 20040608

REACTIONS (4)
  - MIGRAINE [None]
  - OPTIC NEURITIS [None]
  - PHOTOPHOBIA [None]
  - VASCULITIS [None]
